FAERS Safety Report 8529010-X (Version None)
Quarter: 2012Q3

REPORT INFORMATION
  Report Type: 
  Country: None (occurrence: None)
  Receive Date: 20120716
  Receipt Date: 20120716
  Transmission Date: 20120928
  Serious: Yes (Hospitalization)
  Sender: FDA-Public Use
  Company Number: None

PATIENT
  Sex: Male
  Weight: 87.23 kg

DRUGS (4)
  1. VITAMIN D [Suspect]
     Dates: start: 20111130, end: 20120412
  2. VITAMIN D [Suspect]
     Dates: start: 20110815
  3. ZOLEDRONIC ACID [Suspect]
     Dates: start: 20110907, end: 20120620
  4. CALCIUM CARBONATE [Suspect]

REACTIONS (1)
  - BLOOD PHOSPHORUS DECREASED [None]
